FAERS Safety Report 12726953 (Version 2)
Quarter: 2016Q4

REPORT INFORMATION
  Report Type: Spontaneous
  Country: FR (occurrence: FR)
  Receive Date: 20160909
  Receipt Date: 20161110
  Transmission Date: 20170207
  Serious: Yes (Hospitalization, Other)
  Sender: FDA-Public Use
  Company Number: FR-BEH-2016073274

PATIENT
  Age: 30 Year
  Sex: Female

DRUGS (7)
  1. ZITHROMAX [Concomitant]
     Active Substance: AZITHROMYCIN DIHYDRATE
     Route: 048
  2. PRIVIGEN [Suspect]
     Active Substance: HUMAN IMMUNOGLOBULIN G
     Indication: PRODUCT USED FOR UNKNOWN INDICATION
     Dosage: 20 G, UNK
     Route: 042
     Dates: start: 20160615, end: 20160622
  3. HYDROCORTISONE. [Concomitant]
     Active Substance: HYDROCORTISONE
     Route: 048
  4. OCTAGAM IMMUNE GLOBULIN (HUMAN) [Suspect]
     Active Substance: HUMAN IMMUNOGLOBULIN G
     Dosage: 30 G, UNK
     Route: 042
     Dates: start: 20160309
  5. LEVOTHYROX [Concomitant]
     Active Substance: LEVOTHYROXINE
  6. VIVAGLOBIN [Suspect]
     Active Substance: HUMAN IMMUNOGLOBULIN G
     Indication: PRODUCT USED FOR UNKNOWN INDICATION
     Dosage: 4500 MG, QW
     Route: 058
     Dates: start: 2010
  7. VIVAGLOBIN [Suspect]
     Active Substance: HUMAN IMMUNOGLOBULIN G
     Dosage: UNK
     Route: 058
     Dates: start: 20100312

REACTIONS (10)
  - Musculoskeletal stiffness [Recovered/Resolved]
  - Monoparesis [Recovered/Resolved]
  - Meningitis aseptic [Recovered/Resolved]
  - Photophobia [Recovered/Resolved]
  - Meningitis aseptic [Recovered/Resolved]
  - Phonophobia [Recovered/Resolved]
  - Pyrexia [Recovered/Resolved]
  - Hemiparesis [Recovered/Resolved]
  - Chills [Recovered/Resolved]
  - Headache [Recovered/Resolved]

NARRATIVE: CASE EVENT DATE: 20100312
